FAERS Safety Report 14699584 (Version 2)
Quarter: 2018Q4

REPORT INFORMATION
  Report Type: Report from Study
  Country: None (occurrence: IT)
  Receive Date: 20180330
  Receipt Date: 20181220
  Transmission Date: 20190204
  Serious: Yes (Other)
  Sender: FDA-Public Use
  Company Number: IT-ABBVIE-18S-083-2307269-00

PATIENT
  Age: 57 Year
  Sex: Female

DRUGS (2)
  1. LIBRADIN [Suspect]
     Active Substance: BARNIDIPINE HYDROCHLORIDE
     Indication: HYPERTENSION
     Dosage: 10 MG, QD
     Route: 048
     Dates: start: 20180201, end: 20180207
  2. CLARITHROMYCIN. [Suspect]
     Active Substance: CLARITHROMYCIN
     Indication: MASTOIDITIS
     Dosage: 500 MG, QD
     Route: 048
     Dates: start: 20180206, end: 20180207

REACTIONS (4)
  - Abdominal pain upper [Recovering/Resolving]
  - Tachycardia [Recovering/Resolving]
  - Dysgeusia [Recovering/Resolving]
  - Nausea [Recovering/Resolving]

NARRATIVE: CASE EVENT DATE: 20180207
